FAERS Safety Report 8343369-8 (Version None)
Quarter: 2012Q2

REPORT INFORMATION
  Report Type: 
  Country: None (occurrence: None)
  Receive Date: 20120508
  Receipt Date: 20120427
  Transmission Date: 20120825
  Serious: Yes (Other)
  Sender: FDA-Public Use
  Company Number: CA-JNJFOC-20120414102

PATIENT
  Sex: Female
  Weight: 74.7 kg

DRUGS (8)
  1. EFFEXOR [Concomitant]
     Route: 065
  2. FOLIC ACID [Concomitant]
     Route: 065
  3. REMICADE [Suspect]
     Indication: CROHN'S DISEASE
     Dosage: 300 (UNITS UNSPECIFIED)
     Route: 042
     Dates: start: 20110107
  4. COUMADIN [Concomitant]
     Route: 065
  5. MULTI-VITAMINS [Concomitant]
     Route: 065
  6. METHOTREXATE [Concomitant]
     Route: 065
  7. CALCIUM [Concomitant]
     Route: 065
  8. PREDNISONE TAB [Concomitant]
     Dosage: FOR 10 DAYS AND THEN THE DOSE WOULD BE TAPERED
     Route: 065

REACTIONS (2)
  - FISTULA [None]
  - ARTHRALGIA [None]
